FAERS Safety Report 9471936 (Version 1)
Quarter: 2013Q3

REPORT INFORMATION
  Report Type: Spontaneous
  Country: NL (occurrence: NL)
  Receive Date: 20130823
  Receipt Date: 20130823
  Transmission Date: 20140515
  Serious: Yes (Hospitalization)
  Sender: FDA-Public Use
  Company Number: NL-EMCURE-000714

PATIENT
  Age: 58 Year
  Sex: Male

DRUGS (8)
  1. CARMUSTINE [Suspect]
     Indication: MALIGNANT LYMPHOID NEOPLASM
     Route: 042
     Dates: start: 20130305, end: 20130305
  2. RITUXIMAB [Suspect]
     Indication: MALIGNANT LYMPHOID NEOPLASM
     Route: 042
     Dates: start: 20130301, end: 20130302
  3. TENIPOSIDE [Suspect]
     Indication: MALIGNANT LYMPHOID NEOPLASM
     Route: 042
     Dates: start: 20130302, end: 20130304
  4. METHYLPREDNISOLONE [Suspect]
     Indication: MALIGNANT LYMPHOID NEOPLASM
     Route: 042
     Dates: start: 20130302, end: 20130306
  5. METHOTREXATE [Suspect]
     Indication: MALIGNANT LYMPHOID NEOPLASM
     Route: 042
     Dates: start: 20130302, end: 20130302
  6. DEXAMETHASONE [Concomitant]
     Indication: BRAIN OEDEMA
     Route: 048
     Dates: start: 20130215, end: 20130314
  7. CIPROFLOXACIN [Concomitant]
     Route: 048
     Dates: start: 20130402, end: 20130416
  8. FLUCONAZOLE [Concomitant]
     Route: 048
     Dates: start: 20130302, end: 20130314

REACTIONS (2)
  - Febrile neutropenia [Not Recovered/Not Resolved]
  - Pneumonia influenzal [Recovered/Resolved]
